FAERS Safety Report 22593919 (Version 1)
Quarter: 2023Q2

REPORT INFORMATION
  Report Type: Spontaneous
  Country: US (occurrence: US)
  Receive Date: 20230613
  Receipt Date: 20230613
  Transmission Date: 20230722
  Serious: No
  Sender: FDA-Public Use
  Company Number: US-BRISTOL-MYERS SQUIBB COMPANY-2023-082613

PATIENT
  Age: 82 Year
  Sex: Male
  Weight: 62.8 kg

DRUGS (1)
  1. BREYANZI [Suspect]
     Active Substance: LISOCABTAGENE MARALEUCEL
     Indication: Diffuse large B-cell lymphoma
     Route: 042
     Dates: start: 20221214

REACTIONS (2)
  - Decreased appetite [Not Recovered/Not Resolved]
  - Aspartate aminotransferase increased [Not Recovered/Not Resolved]

NARRATIVE: CASE EVENT DATE: 20230109
